FAERS Safety Report 8131361-8 (Version None)
Quarter: 2012Q1

REPORT INFORMATION
  Report Type: 
  Country: None (occurrence: None)
  Receive Date: 20120213
  Receipt Date: 20120203
  Transmission Date: 20120608
  Serious: Yes (Other)
  Sender: FDA-Public Use
  Company Number: US-BAYER-2011-091705

PATIENT
  Sex: Female
  Weight: 70 kg

DRUGS (8)
  1. YAZ [Suspect]
     Dosage: UNK
     Dates: start: 20051101, end: 20060601
  2. DIURETICS [Concomitant]
  3. ORTHO TRI-CYCLEN [Concomitant]
     Dosage: UNK
     Dates: start: 20060601
  4. NSAID'S [Concomitant]
  5. SYNTHROID [Concomitant]
     Dosage: UNK
  6. YASMIN [Suspect]
     Dosage: UNK
     Dates: start: 20050801, end: 20051101
  7. SYNTHROID [Concomitant]
     Indication: THYROID DISORDER
     Dosage: UNK
     Dates: start: 20030101
  8. ORTHO TRI-CYCLEN [Concomitant]
     Indication: CONTRACEPTION
     Dosage: UNK
     Dates: start: 19970101, end: 20050801

REACTIONS (7)
  - ANXIETY [None]
  - INJURY [None]
  - PAIN [None]
  - GENERAL PHYSICAL HEALTH DETERIORATION [None]
  - EMOTIONAL DISTRESS [None]
  - ANHEDONIA [None]
  - CHOLECYSTECTOMY [None]
